FAERS Safety Report 5309382-X (Version None)
Quarter: 2007Q2

REPORT INFORMATION
  Report Type: 
  Country: None (occurrence: None)
  Receive Date: 20070424
  Receipt Date: 20070424
  Transmission Date: 20071010
  Serious: Yes (Life-Threatening)
  Sender: FDA-Public Use
  Company Number: None

PATIENT
  Age: 59 Year
  Sex: Male
  Weight: 83.9154 kg

DRUGS (1)
  1. NARCAN [Suspect]
     Indication: DRUG ABUSER
     Dosage: 10 MINUTES IV
     Dates: start: 20070415, end: 20070415

REACTIONS (4)
  - FEELING HOT [None]
  - HEART RATE DECREASED [None]
  - RESPIRATORY ARREST [None]
  - SOMNOLENCE [None]
